FAERS Safety Report 9572010 (Version 2)
Quarter: 2013Q4

REPORT INFORMATION
  Report Type: Spontaneous
  Country: US (occurrence: US)
  Receive Date: 20131001
  Receipt Date: 20131001
  Transmission Date: 20140711
  Serious: No
  Sender: FDA-Public Use
  Company Number: US-PURDUE-USA-2011-0080378

PATIENT
  Sex: Male

DRUGS (1)
  1. BUTRANS [Suspect]
     Indication: BACK PAIN
     Dosage: 20 MCG, Q1H
     Route: 062
     Dates: start: 201107, end: 201109

REACTIONS (2)
  - Product adhesion issue [Not Recovered/Not Resolved]
  - Hyperhidrosis [Unknown]
